FAERS Safety Report 17589734 (Version 1)
Quarter: 2020Q1

REPORT INFORMATION
  Report Type: Spontaneous
  Country: US (occurrence: US)
  Receive Date: 20200327
  Receipt Date: 20200327
  Transmission Date: 20200409
  Serious: No
  Sender: FDA-Public Use
  Company Number: US-ALLERGAN-1946472US

PATIENT
  Sex: Female

DRUGS (2)
  1. LATISSE [Suspect]
     Active Substance: BIMATOPROST
     Indication: GROWTH OF EYELASHES
     Dosage: 1 DROP PER EYELID WITH SEPARATE APPLICATOR FOR EACH EYE
     Route: 061
     Dates: start: 20191108, end: 20191108
  2. LEVOTHYROXINE. [Concomitant]
     Active Substance: LEVOTHYROXINE
     Indication: HYPOTHYROIDISM

REACTIONS (4)
  - Eyelid pain [Recovered/Resolved]
  - Accidental exposure to product [Unknown]
  - Swelling of eyelid [Recovering/Resolving]
  - Erythema of eyelid [Recovering/Resolving]
